FAERS Safety Report 12326837 (Version 1)
Quarter: 2016Q2

REPORT INFORMATION
  Report Type: Spontaneous
  Country: US (occurrence: US)
  Receive Date: 20160503
  Receipt Date: 20160503
  Transmission Date: 20160815
  Serious: Yes (Hospitalization)
  Sender: FDA-Public Use
  Company Number: US-SA-2016SA084885

PATIENT
  Age: 71 Year
  Sex: Female

DRUGS (14)
  1. RANITIDINE. [Concomitant]
     Active Substance: RANITIDINE
  2. HEPARIN [Concomitant]
     Active Substance: HEPARIN SODIUM
  3. THYMOGLOBULINE [Suspect]
     Active Substance: LAPINE T-LYMPHOCYTE IMMUNE GLOBULIN
     Indication: IMMUNOSUPPRESSION
     Route: 065
  4. METHYLPREDNISOLONE. [Concomitant]
     Active Substance: METHYLPREDNISOLONE
  5. MYCOPHENOLATE MOFETIL. [Concomitant]
     Active Substance: MYCOPHENOLATE MOFETIL
  6. CLOTRIMAZOLE. [Concomitant]
     Active Substance: CLOTRIMAZOLE
  7. BASILIXIMAB [Concomitant]
     Active Substance: BASILIXIMAB
     Indication: IMMUNOSUPPRESSION
  8. METHYLPREDNISOLONE. [Concomitant]
     Active Substance: METHYLPREDNISOLONE
  9. COTRIMOXAZOLE [Concomitant]
     Active Substance: SULFAMETHOXAZOLE\TRIMETHOPRIM
  10. VALGANCICLOVIR. [Concomitant]
     Active Substance: VALGANCICLOVIR
  11. METOPROLOL. [Concomitant]
     Active Substance: METOPROLOL
  12. TACROLIMUS. [Concomitant]
     Active Substance: TACROLIMUS
  13. PREDNISONE. [Concomitant]
     Active Substance: PREDNISONE
  14. CEFAZOLIN [Concomitant]
     Active Substance: CEFAZOLIN

REACTIONS (1)
  - Thrombotic microangiopathy [Recovered/Resolved]
